FAERS Safety Report 20688175 (Version 3)
Quarter: 2022Q4

REPORT INFORMATION
  Report Type: Other
  Country: US (occurrence: None)
  Receive Date: 20220408
  Receipt Date: 20221013
  Transmission Date: 20230112
  Serious: Yes (Hospitalization, Other)
  Sender: FDA-Public Use
  Company Number: US-ROCHE-3065492

PATIENT
  Age: 57 Year
  Sex: Female
  Weight: 81.266 kg

DRUGS (7)
  1. OCREVUS [Suspect]
     Active Substance: OCRELIZUMAB
     Indication: Relapsing-remitting multiple sclerosis
     Dosage: THEN 600 MG EVERY 6 MONTHS
     Route: 042
     Dates: start: 20200323
  2. BACLOFEN [Concomitant]
     Active Substance: BACLOFEN
  3. SIMVASTATIN [Concomitant]
     Active Substance: SIMVASTATIN
  4. AMLODIPINE [Concomitant]
     Active Substance: AMLODIPINE BESYLATE
  5. MAGNESIUM [Concomitant]
     Active Substance: MAGNESIUM
  6. BIOTIN [Concomitant]
     Active Substance: BIOTIN
  7. BENADRYL [Concomitant]
     Active Substance: DIPHENHYDRAMINE HYDROCHLORIDE

REACTIONS (18)
  - COVID-19 pneumonia [Recovering/Resolving]
  - Neck pain [Not Recovered/Not Resolved]
  - Arthralgia [Not Recovered/Not Resolved]
  - Dehydration [Recovered/Resolved]
  - Feeling abnormal [Recovered/Resolved]
  - Blood calcium increased [Unknown]
  - Vitamin D decreased [Unknown]
  - Osteopenia [Not Recovered/Not Resolved]
  - Osteoporosis [Not Recovered/Not Resolved]
  - Rash macular [Recovered/Resolved]
  - Fatigue [Recovered/Resolved]
  - Migraine [Not Recovered/Not Resolved]
  - Alopecia [Recovered/Resolved]
  - Diarrhoea [Recovered/Resolved]
  - Fluid retention [Recovered/Resolved]
  - Urticaria [Recovered/Resolved]
  - Central nervous system lesion [Unknown]
  - Spinal cord neoplasm [Unknown]

NARRATIVE: CASE EVENT DATE: 20210101
